FAERS Safety Report 21356401 (Version 1)
Quarter: 2022Q3

REPORT INFORMATION
  Report Type: Spontaneous
  Country: US (occurrence: US)
  Receive Date: 20220920
  Receipt Date: 20220920
  Transmission Date: 20221027
  Serious: Yes (Other)
  Sender: FDA-Public Use
  Company Number: US-MYOVANT SCIENCES GMBH-2022MYSCI0900232

PATIENT
  Age: 80 Year
  Sex: Male

DRUGS (9)
  1. ORGOVYX [Suspect]
     Active Substance: RELUGOLIX
     Indication: Prostate cancer
     Dosage: 360 MILLIGRAM, ONE TIME DOSE
     Route: 048
  2. ORGOVYX [Suspect]
     Active Substance: RELUGOLIX
     Dosage: 120 MILLIGRAM, QD
     Route: 048
     Dates: start: 20220501
  3. XTANDI [Concomitant]
     Active Substance: ENZALUTAMIDE
     Indication: Prostate cancer
     Dosage: UNK
     Route: 065
  4. ENTRESTO [Concomitant]
     Active Substance: SACUBITRIL\VALSARTAN
     Indication: Blood pressure abnormal
     Dosage: 49 MG/51 MG, BID
     Route: 048
  5. AMLODIPINE [Concomitant]
     Active Substance: AMLODIPINE BESYLATE
     Indication: Blood pressure abnormal
     Dosage: 5 MILLIGRAM, QD
     Route: 048
  6. METOPROLOL [Concomitant]
     Active Substance: METOPROLOL
     Indication: Blood pressure abnormal
     Dosage: 25 MILLIGRAM, QD
     Route: 048
  7. PRAVACHOL [Concomitant]
     Active Substance: PRAVASTATIN SODIUM
     Indication: Blood cholesterol
     Dosage: 40 MILLIGRAM, QD
     Route: 048
  8. ZETIA [Concomitant]
     Active Substance: EZETIMIBE
     Indication: Blood cholesterol
     Dosage: 10 MILLIGRAM, QD
     Route: 048
  9. LATANOPROST\TIMOLOL [Concomitant]
     Active Substance: LATANOPROST\TIMOLOL
     Indication: Glaucoma
     Dosage: 1 DROP, QD

REACTIONS (4)
  - Intracardiac thrombus [Recovered/Resolved]
  - Myocardial infarction [Recovered/Resolved]
  - Therapy interrupted [Not Recovered/Not Resolved]
  - Product distribution issue [Unknown]

NARRATIVE: CASE EVENT DATE: 20220701
